FAERS Safety Report 8841125 (Version 1)
Quarter: 2012Q4

REPORT INFORMATION
  Report Type: 
  Country: CA (occurrence: CA)
  Receive Date: 20121015
  Receipt Date: 20121015
  Transmission Date: 20130627
  Serious: Yes (Other)
  Sender: FDA-Public Use
  Company Number: CA-MYLANLABS-2012S1020757

PATIENT
  Sex: Male

DRUGS (4)
  1. ETANERCEPT [Suspect]
     Indication: SYSTEMIC SCLEROSIS
     Route: 065
  2. METHOTREXATE [Suspect]
     Route: 065
  3. HYDROXYCHLOROQUINE [Suspect]
     Route: 065
  4. MYCOPHENOLATE MOFETIL [Suspect]
     Route: 065

REACTIONS (1)
  - Basal cell carcinoma [Unknown]
